FAERS Safety Report 8507793-2 (Version None)
Quarter: 2012Q3

REPORT INFORMATION
  Report Type: 
  Country: None (occurrence: None)
  Receive Date: 20120713
  Receipt Date: 20120706
  Transmission Date: 20120928
  Serious: Yes (Other)
  Sender: FDA-Public Use
  Company Number: PHHY2012VE059561

PATIENT
  Sex: Female

DRUGS (5)
  1. ZOLEDRONOC ACID [Suspect]
     Dosage: 5 MG, YEARLY
     Route: 042
     Dates: start: 20120401
  2. ZOLEDRONOC ACID [Suspect]
     Indication: OSTEOPOROSIS
     Dosage: 5 MG, YEARLY
     Route: 042
     Dates: start: 20100610
  3. NORVASC [Concomitant]
     Indication: HYPERTENSION
     Dosage: 5 MG, BID
     Route: 048
     Dates: start: 20110701
  4. VYTORIN [Concomitant]
     Indication: BLOOD CHOLESTEROL
     Dosage: 30 MG, UNK
     Route: 048
     Dates: start: 20090101
  5. COZAAR [Concomitant]
     Indication: HYPERTENSION
     Dosage: 50 MG, BID
     Route: 048
     Dates: start: 20080101

REACTIONS (5)
  - CONCOMITANT DISEASE PROGRESSION [None]
  - ARTERIOSCLEROSIS [None]
  - ERYTHEMA [None]
  - ARTHRALGIA [None]
  - BURNING SENSATION [None]
